FAERS Safety Report 9674077 (Version 2)
Quarter: 2014Q1

REPORT INFORMATION
  Report Type: Spontaneous
  Country: US (occurrence: US)
  Receive Date: 20131106
  Receipt Date: 20140307
  Transmission Date: 20141002
  Serious: No
  Sender: FDA-Public Use
  Company Number: US-AMGEN-USASP2013076034

PATIENT
  Age: 10 Year
  Sex: Female

DRUGS (3)
  1. ENBREL [Suspect]
     Indication: OSTEOMYELITIS
     Dosage: 25 MG, 2 TIMES/WK
     Route: 065
     Dates: start: 20130924
  2. ENBREL [Suspect]
     Route: 065
  3. METHOTREXATE [Concomitant]
     Dosage: 2.5 MG, QWK 6 TABLETS (2.5 MG EACH) ONCE A WEEK BY MOUTH
     Route: 048
     Dates: start: 20130920

REACTIONS (10)
  - Bone pain [Not Recovered/Not Resolved]
  - Headache [Recovered/Resolved]
  - Injection site hypoaesthesia [Not Recovered/Not Resolved]
  - Injection site pain [Not Recovered/Not Resolved]
  - Injection site bruising [Not Recovered/Not Resolved]
  - Injection site reaction [Not Recovered/Not Resolved]
  - Injection site warmth [Not Recovered/Not Resolved]
  - Injection site erythema [Not Recovered/Not Resolved]
  - Pain in extremity [Not Recovered/Not Resolved]
  - Pain [Not Recovered/Not Resolved]
